FAERS Safety Report 20476351 (Version 1)
Quarter: 2022Q1

REPORT INFORMATION
  Report Type: Spontaneous
  Country: US (occurrence: US)
  Receive Date: 20220215
  Receipt Date: 20220215
  Transmission Date: 20220423
  Serious: Yes (Death)
  Sender: FDA-Public Use
  Company Number: US-CELGENE-USA-20220204329

PATIENT
  Age: 60 Year
  Sex: Male

DRUGS (18)
  1. REVLIMID [Suspect]
     Active Substance: LENALIDOMIDE
     Indication: Plasma cell myeloma
     Dosage: 25 MILLIGRAM
     Route: 048
     Dates: start: 201903
  2. REVLIMID [Suspect]
     Active Substance: LENALIDOMIDE
     Dosage: 25 MILLIGRAM
     Route: 048
     Dates: start: 202011, end: 20220128
  3. ACYCLOVIR [Concomitant]
     Active Substance: ACYCLOVIR
     Indication: Product used for unknown indication
     Dosage: 800 MILLIGRAM
     Route: 048
     Dates: start: 20201206
  4. NYSTATIN [Concomitant]
     Active Substance: NYSTATIN
     Indication: Oral pain
     Dosage: 100000 UNIT PER ML
     Route: 061
     Dates: start: 20210323
  5. NYSTATIN [Concomitant]
     Active Substance: NYSTATIN
     Dosage: 20 MILLILITER
     Route: 048
     Dates: start: 20210603
  6. NYSTATIN [Concomitant]
     Active Substance: NYSTATIN
     Dosage: 100000 UNIT PER ML
     Route: 061
     Dates: start: 20211126
  7. ALBUTEROL SULFATE [Concomitant]
     Active Substance: ALBUTEROL SULFATE
     Indication: Product used for unknown indication
     Dosage: 1-2 PUFF EVERY 6 HOURLY
     Route: 048
     Dates: start: 20211126
  8. AMIODARONE [Concomitant]
     Active Substance: AMIODARONE
     Indication: Product used for unknown indication
     Dosage: TAKE ONE TABLET 3 TIMES DAILY FOR 31 DOSES THEN 1 TABLET EVERY OTHER DAY
     Route: 048
     Dates: start: 20211204
  9. AMOXIKLAV [Concomitant]
     Indication: Product used for unknown indication
     Dosage: 875-125 MG
     Route: 048
     Dates: start: 20210222
  10. BENZONATATE [Concomitant]
     Active Substance: BENZONATATE
     Indication: Cough
     Dosage: 300 MILLIGRAM, 1 CAPSULE 3 TIMES DAILY AS NEEDED, SWALLOW WHOLE CAPSULE
     Route: 048
     Dates: start: 20201104
  11. DEXAMETHASONE [Concomitant]
     Active Substance: DEXAMETHASONE
     Indication: Product used for unknown indication
     Dosage: 10 TABLETS EVERY OTHER TUESDAY
     Route: 048
     Dates: start: 20210125
  12. DOXYCYCLINE [Concomitant]
     Active Substance: DOXYCYCLINE
     Indication: Product used for unknown indication
     Dosage: 200 MILLIGRAM
     Route: 048
     Dates: start: 20201104
  13. DOXYCYCLINE [Concomitant]
     Active Substance: DOXYCYCLINE
     Dosage: 200 MILLIGRAM
     Route: 048
     Dates: start: 20210222
  14. GABAPENTIN [Concomitant]
     Active Substance: GABAPENTIN
     Indication: Product used for unknown indication
     Route: 048
  15. METOPROLOL SUCCINATE [Concomitant]
     Active Substance: METOPROLOL SUCCINATE
     Indication: Product used for unknown indication
     Route: 048
  16. POTASSIUM CHLORIDE [Concomitant]
     Active Substance: POTASSIUM CHLORIDE
     Indication: Product used for unknown indication
     Route: 065
  17. NARCAN [Concomitant]
     Active Substance: NALOXONE HYDROCHLORIDE
     Indication: Product used for unknown indication
     Dosage: 4MG/0.1 ML, 1 SPRAY INTO ONE NOSTRIL,FOR OPOID REVERSAL. REPEAT EVERY 2-3 MINUTES IN ALTERNATING NOS
     Route: 055
     Dates: start: 20211126
  18. ACETAMINOPHEN\OXYCODONE HYDROCHLORIDE [Concomitant]
     Active Substance: ACETAMINOPHEN\OXYCODONE HYDROCHLORIDE
     Indication: Pain
     Dosage: 1 TABLET EVERY 4-6 HOURS
     Route: 048
     Dates: start: 20200825

REACTIONS (1)
  - Death [Fatal]

NARRATIVE: CASE EVENT DATE: 20220128
